FAERS Safety Report 10890497 (Version 2)
Quarter: 2015Q2

REPORT INFORMATION
  Report Type: Spontaneous
  Country: JP (occurrence: JP)
  Receive Date: 20150305
  Receipt Date: 20150424
  Transmission Date: 20150821
  Serious: Yes (Other)
  Sender: FDA-Public Use
  Company Number: JP-PFIZER INC-2015076040

PATIENT
  Age: 79 Year
  Sex: Female

DRUGS (1)
  1. LYRICA [Suspect]
     Active Substance: PREGABALIN
     Dosage: 25 MG IN THE MORNING AND 75 MG BEFORE BEDTIME
     Route: 048
     Dates: end: 20140925

REACTIONS (2)
  - Fall [Unknown]
  - Facial bones fracture [Unknown]

NARRATIVE: CASE EVENT DATE: 2014
